FAERS Safety Report 6216429-5 (Version None)
Quarter: 2009Q2

REPORT INFORMATION
  Report Type: 
  Country: None (occurrence: None)
  Receive Date: 20090605
  Receipt Date: 20090601
  Transmission Date: 20091009
  Serious: Yes (Death, Hospitalization)
  Sender: FDA-Public Use
  Company Number: US-GILEAD-2009-0021843

PATIENT
  Sex: Female
  Weight: 50.848 kg

DRUGS (12)
  1. LETAIRIS [Suspect]
     Indication: PULMONARY ARTERIAL HYPERTENSION
     Route: 048
     Dates: start: 20080830
  2. FLOLAN [Concomitant]
  3. COUMADIN [Concomitant]
  4. HIDEAWAY OXYGEN SYSTEM [Concomitant]
  5. LASIX [Concomitant]
  6. HYDROCHLOROTHIAZIDE [Concomitant]
  7. DIGOXIN [Concomitant]
  8. ATROVENT [Concomitant]
  9. POTASSIUM CHLORIDE [Concomitant]
  10. ATIVAN [Concomitant]
  11. DOXYCYCLINE [Concomitant]
  12. DIAZEPAM [Concomitant]

REACTIONS (6)
  - CARDIAC FAILURE CONGESTIVE [None]
  - LOBAR PNEUMONIA [None]
  - PULMONARY ARTERIAL HYPERTENSION [None]
  - RESPIRATORY FAILURE [None]
  - RIGHT VENTRICULAR FAILURE [None]
  - SEPTIC SHOCK [None]
